FAERS Safety Report 24162058 (Version 1)
Quarter: 2024Q3

REPORT INFORMATION
  Report Type: Spontaneous
  Country: JP (occurrence: JP)
  Receive Date: 20240801
  Receipt Date: 20240801
  Transmission Date: 20241016
  Serious: Yes (Other)
  Sender: MERCK
  Company Number: JP-MSD-2407JPN004427J

PATIENT
  Age: 79 Year
  Sex: Male

DRUGS (6)
  1. KEYTRUDA [Suspect]
     Active Substance: PEMBROLIZUMAB
     Indication: Lung adenocarcinoma recurrent
     Dosage: UNK
     Route: 065
     Dates: start: 2019
  2. KEYTRUDA [Suspect]
     Active Substance: PEMBROLIZUMAB
     Indication: PD-L1 positive cancer
  3. CARBOPLATIN [Suspect]
     Active Substance: CARBOPLATIN
     Indication: Lung adenocarcinoma recurrent
     Dosage: UNK
     Route: 065
     Dates: start: 2019
  4. CARBOPLATIN [Suspect]
     Active Substance: CARBOPLATIN
     Indication: PD-L1 positive cancer
  5. PEMETREXED DISODIUM [Suspect]
     Active Substance: PEMETREXED DISODIUM
     Indication: Lung adenocarcinoma recurrent
     Dosage: UNK
     Route: 065
     Dates: start: 2019
  6. PEMETREXED DISODIUM [Suspect]
     Active Substance: PEMETREXED DISODIUM
     Indication: PD-L1 positive cancer

REACTIONS (2)
  - Intestinal obstruction [Unknown]
  - Pneumonia bacterial [Unknown]
